FAERS Safety Report 4384453-3 (Version None)
Quarter: 2004Q2

REPORT INFORMATION
  Report Type: 
  Country: None (occurrence: None)
  Receive Date: 20040607
  Receipt Date: 20031110
  Transmission Date: 20050107
  Serious: Yes (Other)
  Sender: FDA-Public Use
  Company Number: 349247

PATIENT
  Sex: 0

DRUGS (4)
  1. ACCUTANE [Suspect]
     Indication: ACNE
     Dosage: ORAL
     Route: 048
     Dates: start: 20020115, end: 20020815
  2. PAXIL [Concomitant]
  3. ORAL CONTRACEPTIVE PILL (ORAL CONTRACEPTIVE NOS) [Concomitant]
  4. MULTIVITAMIN [Concomitant]

REACTIONS (1)
  - ABORTION INDUCED [None]
